FAERS Safety Report 7300821-1 (Version None)
Quarter: 2011Q1

REPORT INFORMATION
  Report Type: 
  Country: None (occurrence: None)
  Receive Date: 20110218
  Receipt Date: 20110128
  Transmission Date: 20110831
  Serious: Yes (Other)
  Sender: FDA-Public Use
  Company Number: US-BAXTER-2011BH003672

PATIENT
  Age: 20 Year
  Sex: Female

DRUGS (12)
  1. DOXORUBICIN GENERIC [Suspect]
     Indication: NON-HODGKIN'S LYMPHOMA
     Route: 065
  2. PIPERACILLIN AND TAZOBACTAM [Concomitant]
     Indication: PNEUMONIA
     Route: 065
  3. LINEZOLID [Concomitant]
     Indication: PNEUMONIA
     Route: 065
  4. VINBLASTINE [Suspect]
     Indication: NON-HODGKIN'S LYMPHOMA
     Route: 065
  5. DACARBAZINE [Suspect]
     Indication: NON-HODGKIN'S LYMPHOMA
     Route: 065
  6. PROPOFOL [Suspect]
     Indication: SEDATION
     Route: 065
  7. ENOXAPARIN SODIUM [Concomitant]
     Indication: PRODUCT USED FOR UNKNOWN INDICATION
     Route: 065
  8. VINCRISTINE SULFATE [Suspect]
     Indication: NON-HODGKIN'S LYMPHOMA
     Route: 065
  9. MIDAZOLAM [Concomitant]
     Indication: SEDATION
     Route: 065
  10. FENTANYL [Concomitant]
     Indication: ANALGESIC THERAPY
     Route: 065
  11. CYCLOPHOSPHAMIDE [Suspect]
     Indication: NON-HODGKIN'S LYMPHOMA
     Route: 065
  12. AMPHOTERICINE B, LIPOSOME [Concomitant]
     Indication: FUNGAEMIA
     Route: 065

REACTIONS (2)
  - DRUG EXPOSURE DURING PREGNANCY [None]
  - ABORTION INDUCED [None]
